FAERS Safety Report 19743701 (Version 2)
Quarter: 2021Q4

REPORT INFORMATION
  Report Type: Spontaneous
  Country: US (occurrence: US)
  Receive Date: 20210824
  Receipt Date: 20211104
  Transmission Date: 20220303
  Serious: No
  Sender: FDA-Public Use
  Company Number: US-BEH-2021135141

PATIENT
  Sex: Male

DRUGS (4)
  1. HIZENTRA [Suspect]
     Active Substance: HUMAN IMMUNOGLOBULIN G
     Indication: Immunodeficiency common variable
     Dosage: 24 GRAM, QW
     Route: 058
     Dates: start: 201611
  2. HIZENTRA [Suspect]
     Active Substance: HUMAN IMMUNOGLOBULIN G
     Indication: Malabsorption
     Dosage: 24 GRAM, QW
     Route: 058
     Dates: start: 201611
  3. HIZENTRA [Suspect]
     Active Substance: HUMAN IMMUNOGLOBULIN G
     Indication: Crohn^s disease
     Dosage: 20 GRAM, QW
     Route: 058
     Dates: start: 202107
  4. HIZENTRA [Suspect]
     Active Substance: HUMAN IMMUNOGLOBULIN G
     Dosage: 4 GRAM, QW
     Route: 058
     Dates: start: 202107

REACTIONS (3)
  - Headache [Unknown]
  - No adverse event [Unknown]
  - Off label use [Unknown]
